FAERS Safety Report 7906836-4 (Version None)
Quarter: 2011Q4

REPORT INFORMATION
  Report Type: 
  Country: None (occurrence: None)
  Receive Date: 20111109
  Receipt Date: 20111109
  Transmission Date: 20120403
  Serious: Yes (Death)
  Sender: FDA-Public Use
  Company Number: None

PATIENT
  Sex: Female

DRUGS (7)
  1. EPOGEN [Concomitant]
  2. NEUPOGEN [Concomitant]
  3. OXYBUTYNIN [Concomitant]
  4. REVLIMID [Suspect]
     Indication: MYELODYSPLASTIC SYNDROME
     Dosage: 5MG DAILY ORALLY
     Route: 048
     Dates: start: 20111001, end: 20111101
  5. ZOCOR [Concomitant]
  6. LEVOTHROID [Concomitant]
  7. ZOFRAN [Concomitant]

REACTIONS (2)
  - RESPIRATORY FAILURE [None]
  - SEPSIS [None]
